FAERS Safety Report 4592234-0 (Version None)
Quarter: 2005Q1

REPORT INFORMATION
  Report Type: 
  Country: None (occurrence: None)
  Receive Date: 20050228
  Receipt Date: 20041020
  Transmission Date: 20050727
  Serious: No
  Sender: FDA-Public Use
  Company Number: US-BRISTOL-MYERS SQUIBB COMPANY-12738357

PATIENT
  Age: 33 Year
  Sex: Female

DRUGS (6)
  1. ABILIFY [Suspect]
     Indication: DEPRESSION
     Dosage: FROM 15-AUG-2004 TO 05-SEP-2004, INTERUPTED AND RESTARTED 01-NOV-2004, DISCONTINUED ON 08-NOV-2004.
     Route: 048
     Dates: start: 20040815, end: 20041108
  2. ABILIFY [Suspect]
     Indication: PARANOIA
     Dosage: FROM 15-AUG-2004 TO 05-SEP-2004, INTERUPTED AND RESTARTED 01-NOV-2004, DISCONTINUED ON 08-NOV-2004.
     Route: 048
     Dates: start: 20040815, end: 20041108
  3. SEROQUEL [Concomitant]
  4. LEXAPRO [Concomitant]
  5. WELLBUTRIN SR [Concomitant]
  6. DEPAKOTE [Concomitant]

REACTIONS (3)
  - GLOSSODYNIA [None]
  - SWOLLEN TONGUE [None]
  - TONGUE DISORDER [None]
